FAERS Safety Report 6840217-X (Version None)
Quarter: 2010Q3

REPORT INFORMATION
  Report Type: 
  Country: None (occurrence: None)
  Receive Date: 20100713
  Receipt Date: 20100713
  Transmission Date: 20110219
  Serious: Yes (Hospitalization)
  Sender: FDA-Public Use
  Company Number: None

PATIENT
  Age: 72 Year
  Sex: Female
  Weight: 53.6 kg

DRUGS (8)
  1. DASATINIB 20MG BRISTOL MYERS SQUIBB [Suspect]
     Indication: BREAST CANCER METASTATIC
     Dates: start: 20100609, end: 20100708
  2. DASATINIB 50MG BRISTOL MYERS SQUIBB [Suspect]
     Indication: BREAST CANCER METASTATIC
     Dates: start: 20100609, end: 20100708
  3. NORVASC [Concomitant]
  4. ZOFRAN [Concomitant]
  5. VITAMIN D [Concomitant]
  6. VITAMIN C [Concomitant]
  7. ALEVE (CAPLET) [Concomitant]
  8. ACETAMINOPHEN [Concomitant]

REACTIONS (3)
  - ACTIVITIES OF DAILY LIVING IMPAIRED [None]
  - DYSPNOEA [None]
  - PLEURAL EFFUSION [None]
